FAERS Safety Report 6329136-5 (Version None)
Quarter: 2009Q3

REPORT INFORMATION
  Report Type: 
  Country: None (occurrence: None)
  Receive Date: 20090824
  Receipt Date: 20090824
  Transmission Date: 20100115
  Serious: Yes (Other)
  Sender: FDA-Public Use
  Company Number: None

PATIENT
  Age: 8 Year
  Sex: Female
  Weight: 26.7622 kg

DRUGS (1)
  1. AUGMENTIN [Suspect]

REACTIONS (5)
  - ARTHRALGIA [None]
  - CRYING [None]
  - PAIN IN EXTREMITY [None]
  - PAIN IN JAW [None]
  - RASH [None]
